FAERS Safety Report 6499809-2 (Version None)
Quarter: 2009Q4

REPORT INFORMATION
  Report Type: 
  Country: None (occurrence: None)
  Receive Date: 20091214
  Receipt Date: 20091202
  Transmission Date: 20100525
  Serious: Yes (Hospitalization)
  Sender: FDA-Public Use
  Company Number: 1-20508602

PATIENT
  Age: 10 Year
  Sex: Male
  Weight: 56.6996 kg

DRUGS (4)
  1. CLONIDINE HCL [Suspect]
     Indication: AFFECTIVE DISORDER
     Dosage: 0.1 MG, NIGHTLY, ORAL
     Route: 048
     Dates: start: 20091020
  2. CLONIDINE HCL [Suspect]
     Indication: BIPOLAR DISORDER
     Dosage: 0.1 MG, NIGHTLY, ORAL
     Route: 048
     Dates: start: 20091020
  3. LITHIUM [Concomitant]
  4. ABILIFY [Concomitant]

REACTIONS (9)
  - ABDOMINAL PAIN UPPER [None]
  - ANXIETY [None]
  - BACTERIAL INFECTION [None]
  - INITIAL INSOMNIA [None]
  - IRRITABILITY [None]
  - MIDDLE INSOMNIA [None]
  - PRODUCT SUBSTITUTION ISSUE [None]
  - SLUGGISHNESS [None]
  - SPLENOMEGALY [None]
